FAERS Safety Report 21018767 (Version 1)
Quarter: 2022Q2

REPORT INFORMATION
  Report Type: Spontaneous
  Country: JP (occurrence: JP)
  Receive Date: 20220628
  Receipt Date: 20220628
  Transmission Date: 20220721
  Serious: Yes (Life-Threatening, Hospitalization)
  Sender: FDA-Public Use
  Company Number: JP-TEVA-2022-JP-2049743

PATIENT
  Age: 13 Year
  Sex: Female

DRUGS (7)
  1. HYDROCORTISONE [Suspect]
     Active Substance: HYDROCORTISONE
     Indication: Thyrotoxic crisis
     Route: 065
  2. ACETAMINOPHEN [Suspect]
     Active Substance: ACETAMINOPHEN
     Indication: Thyrotoxic crisis
     Route: 065
  3. METHIMAZOLE [Suspect]
     Active Substance: METHIMAZOLE
     Indication: Thyrotoxic crisis
     Route: 065
  4. LUGOL [Suspect]
     Active Substance: IODINE\POTASSIUM IODIDE
     Indication: Thyrotoxic crisis
     Route: 065
  5. LANDIOLOL [Suspect]
     Active Substance: LANDIOLOL
     Indication: Thyrotoxic crisis
     Route: 065
  6. MANNITOL [Suspect]
     Active Substance: MANNITOL
     Indication: Brain oedema
     Dosage: MANNITOL HYPEROSMOLAR THERAPY
     Route: 065
  7. MANNITOL [Suspect]
     Active Substance: MANNITOL
     Indication: Brain herniation

REACTIONS (1)
  - Drug ineffective [Unknown]
